FAERS Safety Report 23508054 (Version 1)
Quarter: 2024Q1

REPORT INFORMATION
  Report Type: Spontaneous
  Country: US (occurrence: US)
  Receive Date: 20240209
  Receipt Date: 20240209
  Transmission Date: 20240410
  Serious: Yes (Other)
  Sender: FDA-Public Use
  Company Number: US-JNJFOC-20240182329

PATIENT

DRUGS (1)
  1. TALQUETAMAB [Suspect]
     Active Substance: TALQUETAMAB
     Indication: Plasma cell myeloma
     Route: 065

REACTIONS (5)
  - Plasma cell myeloma [Unknown]
  - Ageusia [Recovered/Resolved]
  - Nail disorder [Not Recovered/Not Resolved]
  - Depression [Recovered/Resolved]
  - Adverse drug reaction [Recovered/Resolved]
